FAERS Safety Report 6804367-6 (Version None)
Quarter: 2010Q2

REPORT INFORMATION
  Report Type: 
  Country: None (occurrence: None)
  Receive Date: 20100628
  Receipt Date: 20070526
  Transmission Date: 20101027
  Serious: No
  Sender: FDA-Public Use
  Company Number: US-PFIZER INC-2007020124

PATIENT
  Sex: Male

DRUGS (1)
  1. GENOTROPIN [Suspect]

REACTIONS (3)
  - INFLUENZA LIKE ILLNESS [None]
  - NASOPHARYNGITIS [None]
  - WEIGHT DECREASED [None]
